FAERS Safety Report 12218399 (Version 1)
Quarter: 2016Q1

REPORT INFORMATION
  Report Type: Spontaneous
  Country: US (occurrence: US)
  Receive Date: 20160329
  Receipt Date: 20160329
  Transmission Date: 20160526
  Serious: No
  Sender: FDA-Public Use
  Company Number: US-PFIZER INC-2016134130

PATIENT
  Age: 66 Year
  Sex: Female

DRUGS (17)
  1. VISTARIL [Concomitant]
     Active Substance: HYDROXYZINE PAMOATE
     Indication: PAIN
     Dosage: 25 MG, 4X/DAY
  2. GABAPENTIN. [Concomitant]
     Active Substance: GABAPENTIN
     Indication: SPINAL PAIN
     Dosage: 600 MG, 4X/DAY
  3. VALIUM [Concomitant]
     Active Substance: DIAZEPAM
     Indication: PAIN
     Dosage: 2 MG, UNK
  4. VALIUM [Concomitant]
     Active Substance: DIAZEPAM
     Indication: MUSCLE SPASMS
  5. DULOXETINE. [Concomitant]
     Active Substance: DULOXETINE
     Indication: FIBROMYALGIA
     Dosage: 20 MG, 2X/DAY
  6. FISH OIL [Concomitant]
     Active Substance: FISH OIL
     Dosage: 1200 MG, 1X/DAY
  7. SYNTHROID [Concomitant]
     Active Substance: LEVOTHYROXINE SODIUM
     Indication: HYPOTHYROIDISM
     Dosage: 137 UG, 1X/DAY
  8. POLYETHYLENE GLYCOL [Concomitant]
     Active Substance: POLYETHYLENE GLYCOLS
     Indication: FAECES SOFT
     Dosage: 1 DF, 1X/DAY(3350 NF POWDER)
  9. AMLODIPINE [Concomitant]
     Active Substance: AMLODIPINE BESYLATE
     Indication: BLOOD PRESSURE INCREASED
     Dosage: 5 MG, 1X/DAY
  10. SKELAXIN [Suspect]
     Active Substance: METAXALONE
     Indication: MUSCLE RELAXANT THERAPY
     Dosage: 800 MG, 3X/DAY
  11. B COMPLEX SUPREME [Concomitant]
     Dosage: UNK, 1X/DAY
  12. NABUMETONE. [Suspect]
     Active Substance: NABUMETONE
     Indication: ARTHRITIS
     Dosage: 500 MG, 1X/DAY
  13. BACLOFEN. [Concomitant]
     Active Substance: BACLOFEN
     Indication: MUSCLE SPASMS
     Dosage: 10 MG, 3X/DAY
  14. CALCIUM CARBONATE AND VITAMIN D [Concomitant]
     Dosage: 600 MG, 2X/DAY
  15. GABAPENTIN. [Concomitant]
     Active Substance: GABAPENTIN
     Indication: POST POLIO SYNDROME
  16. HYDROCODONE BITARTRATE AND ACETAMINOPHEN [Concomitant]
     Active Substance: ACETAMINOPHEN\HYDROCODONE BITARTRATE
     Indication: PAIN
     Dosage: UNK, 4X/DAY (5-500 MG TAB, ONE 4 TIMES PER DAY(UP TO 6 PER DAY) )
  17. TRIPLE STRENGTH GLUCOSAMINE CHONDROITIN AND M [Concomitant]
     Dosage: UNK, 2X/DAY

REACTIONS (1)
  - Drug effect incomplete [Unknown]
